FAERS Safety Report 19574275 (Version 1)
Quarter: 2021Q3

REPORT INFORMATION
  Report Type: Spontaneous
  Country: US (occurrence: US)
  Receive Date: 20210719
  Receipt Date: 20210719
  Transmission Date: 20211014
  Serious: Yes (Death, Other)
  Sender: FDA-Public Use
  Company Number: US-DRREDDYS-LIT/USA/21/0137856

PATIENT
  Age: 17 Year
  Sex: Female

DRUGS (1)
  1. COLCHICINE. [Suspect]
     Active Substance: COLCHICINE
     Indication: COMPLETED SUICIDE
     Dosage: INGESTING 10 OF HER 0.6MG COLCHICINE TABLETS, HER FATHER STATED IT MIGHT HAD BEEN UP TO 45 TABLETS
     Route: 048

REACTIONS (7)
  - Toxicity to various agents [Fatal]
  - Abdominal pain [Unknown]
  - Back pain [Unknown]
  - Aspiration [Unknown]
  - Diarrhoea [Unknown]
  - Vomiting [Unknown]
  - Overdose [Unknown]
